FAERS Safety Report 23301073 (Version 1)
Quarter: 2023Q4

REPORT INFORMATION
  Report Type: Spontaneous
  Country: TR (occurrence: TR)
  Receive Date: 20231215
  Receipt Date: 20231215
  Transmission Date: 20240109
  Serious: Yes (Death, Hospitalization, Other)
  Sender: FDA-Public Use
  Company Number: TR-AMGEN-TURSP2023218637

PATIENT

DRUGS (5)
  1. ADALIMUMAB [Suspect]
     Active Substance: ADALIMUMAB\ISOPROPYL ALCOHOL
     Indication: Behcet^s syndrome
     Dosage: UNK
     Route: 065
  2. ADALIMUMAB [Suspect]
     Active Substance: ADALIMUMAB\ISOPROPYL ALCOHOL
     Indication: Inflammation masked
  3. AZATHIOPRINE [Concomitant]
     Active Substance: AZATHIOPRINE
     Indication: Behcet^s syndrome
     Dosage: UNK
     Route: 065
  4. AZATHIOPRINE [Concomitant]
     Active Substance: AZATHIOPRINE
     Indication: Deep vein thrombosis
  5. AZATHIOPRINE [Concomitant]
     Active Substance: AZATHIOPRINE
     Indication: Vena cava thrombosis

REACTIONS (20)
  - Haemorrhage intracranial [Fatal]
  - COVID-19 pneumonia [Unknown]
  - Hepatotoxicity [Unknown]
  - Vena cava thrombosis [Unknown]
  - Portal vein thrombosis [Unknown]
  - Coronary artery occlusion [Unknown]
  - Subclavian artery occlusion [Unknown]
  - Renal artery occlusion [Unknown]
  - Pulmonary artery aneurysm [Unknown]
  - Pulmonary artery thrombosis [Unknown]
  - Intracardiac thrombus [Unknown]
  - Coronary artery aneurysm [Unknown]
  - Deep vein thrombosis [Unknown]
  - Myocardial infarction [Unknown]
  - Jugular vein thrombosis [Unknown]
  - Femoral artery aneurysm [Unknown]
  - Peripheral artery aneurysm [Unknown]
  - Peripheral artery aneurysm [Unknown]
  - Drug effective for unapproved indication [Unknown]
  - Off label use [Unknown]
